FAERS Safety Report 6631476-7 (Version None)
Quarter: 2010Q1

REPORT INFORMATION
  Report Type: 
  Country: None (occurrence: None)
  Receive Date: 20100311
  Receipt Date: 20100311
  Transmission Date: 20100710
  Serious: Yes (Other)
  Sender: FDA-Public Use
  Company Number: None

PATIENT
  Age: 41 Year
  Sex: Female
  Weight: 92.0802 kg

DRUGS (1)
  1. CYMBALTA [Suspect]
     Indication: DEPRESSION
     Dosage: 10 MG 1 X DAY
     Dates: start: 20090720, end: 20090907

REACTIONS (13)
  - COGNITIVE DISORDER [None]
  - CONFUSIONAL STATE [None]
  - FEMALE SEXUAL DYSFUNCTION [None]
  - FLAT AFFECT [None]
  - HEPATIC ENZYME INCREASED [None]
  - MEMORY IMPAIRMENT [None]
  - NERVOUS SYSTEM DISORDER [None]
  - PARALYSIS [None]
  - SPEECH DISORDER [None]
  - SUICIDAL IDEATION [None]
  - VISUAL BRIGHTNESS [None]
  - VISUAL IMPAIRMENT [None]
  - WEIGHT INCREASED [None]
